FAERS Safety Report 9386463 (Version 6)
Quarter: 2014Q1

REPORT INFORMATION
  Report Type: Report from Study
  Country: FR (occurrence: FR)
  Receive Date: 20130708
  Receipt Date: 20140122
  Transmission Date: 20141002
  Serious: Yes (Life-Threatening, Hospitalization)
  Sender: FDA-Public Use
  Company Number: FR-BRISTOL-MYERS SQUIBB COMPANY-19064328

PATIENT
  Age: 65 Year
  Sex: Female

DRUGS (18)
  1. CARBOPLATIN [Suspect]
     Indication: OVARIAN CANCER
     Dosage: LAST DOSE PRIOR TO SAE 11JUN13,2JUL13,05NOV13
     Route: 065
     Dates: start: 20130323
  2. PACLITAXEL [Suspect]
     Indication: OVARIAN CANCER
     Dosage: LAST DOSE PRIOR TO SAE 11JUN13,02JUL13?23APR13
     Route: 065
     Dates: start: 20130323
  3. LEVOTHYROX [Concomitant]
  4. SIMVASTATINE [Concomitant]
  5. SEROPLEX [Concomitant]
  6. OMEPRAZOL [Concomitant]
  7. DUSPATALIN [Concomitant]
  8. DOLIPRANE [Concomitant]
  9. ZALDIAR [Concomitant]
  10. METHYLPREDNISOLONE [Concomitant]
     Dates: start: 20130423
  11. POLARAMIN [Concomitant]
     Dates: start: 20130423
  12. RANITIDINE [Concomitant]
     Dates: start: 20130423
  13. ONDANSETRON [Concomitant]
     Dates: start: 20130423
  14. APREPITANT [Concomitant]
     Dates: start: 20130424
  15. SOLUPRED [Concomitant]
     Dates: start: 20130422
  16. ATARAX [Concomitant]
     Dates: start: 20130704, end: 20130704
  17. SPASFON [Concomitant]
     Dates: start: 20130704, end: 201309
  18. FUMAFER [Concomitant]
     Dates: start: 201308, end: 201309

REACTIONS (2)
  - Hypomagnesaemia [Recovered/Resolved]
  - Renal failure [Recovered/Resolved]
